FAERS Safety Report 13546371 (Version 3)
Quarter: 2017Q2

REPORT INFORMATION
  Report Type: Spontaneous
  Country: JP (occurrence: JP)
  Receive Date: 20170515
  Receipt Date: 20170607
  Transmission Date: 20170830
  Serious: Yes (Other)
  Sender: FDA-Public Use
  Company Number: JP-PFIZER INC-2017206498

PATIENT
  Age: 54 Year
  Sex: Female

DRUGS (4)
  1. GEMCITABINE [Concomitant]
     Active Substance: GEMCITABINE\GEMCITABINE HYDROCHLORIDE
     Indication: LYMPHANGIOMA
     Dosage: UNK
  2. PACLITAXEL. [Suspect]
     Active Substance: PACLITAXEL
     Indication: OVARIAN CANCER METASTATIC
     Dosage: UNK, CYCLIC (OVER 9 MONTHS)
  3. DOXORUBICIN [Concomitant]
     Active Substance: DOXORUBICIN
     Dosage: UNK, CYCLIC
  4. CARBOPLATIN. [Concomitant]
     Active Substance: CARBOPLATIN
     Indication: OVARIAN CANCER METASTATIC
     Dosage: 175 MG/M2, CYCLIC (AREA UNDER THE CURVE OF 4.5, RESPECTIVELY OVER 9 MONTHS)

REACTIONS (2)
  - Scleroderma-like reaction [Recovered/Resolved]
  - Gangrene [Recovered/Resolved]
